FAERS Safety Report 25759579 (Version 1)
Quarter: 2025Q3

REPORT INFORMATION
  Report Type: Report from Study
  Country: US (occurrence: US)
  Receive Date: 20250904
  Receipt Date: 20250904
  Transmission Date: 20251020
  Serious: No
  Sender: SUNOVION
  Company Number: US-SUMITOMO PHARMA SWITZERLAND GMBH-2025SPA011126

PATIENT
  Age: 69 Year
  Sex: Male

DRUGS (6)
  1. ORGOVYX [Suspect]
     Active Substance: RELUGOLIX
     Indication: Prostate cancer
     Route: 048
     Dates: start: 20250823, end: 20250823
  2. ORGOVYX [Suspect]
     Active Substance: RELUGOLIX
     Route: 048
  3. COENZYME Q10 [Concomitant]
     Active Substance: DIETARY SUPPLEMENT\UBIDECARENONE
  4. DIETARY SUPPLEMENT\GRAPE SEED EXTRACT [Concomitant]
     Active Substance: DIETARY SUPPLEMENT\GRAPE SEED EXTRACT
  5. TEA [Concomitant]
     Active Substance: TEA LEAF
  6. TIMOLOL MALEATE [Concomitant]
     Active Substance: TIMOLOL MALEATE

REACTIONS (1)
  - Hot flush [Unknown]
